FAERS Safety Report 4297686-1 (Version None)
Quarter: 2004Q1

REPORT INFORMATION
  Report Type: 
  Country: None (occurrence: None)
  Receive Date: 20040126
  Receipt Date: 20031103
  Transmission Date: 20041129
  Serious: No
  Sender: FDA-Public Use
  Company Number: USA031151487

PATIENT
  Age: 21 Year
  Sex: Male

DRUGS (3)
  1. ZYPREXA [Suspect]
     Indication: SCHIZOPHRENIA
     Dosage: 20 MG/DAY
     Dates: start: 20030101
  2. STRATTERA [Suspect]
     Indication: DISTURBANCE IN ATTENTION
     Dosage: 80 MG/DAY
     Dates: start: 20031001
  3. CELEXA [Concomitant]

REACTIONS (4)
  - DYSKINESIA [None]
  - GAIT DISTURBANCE [None]
  - MUSCLE TWITCHING [None]
  - ORTHOSTATIC HYPOTENSION [None]
